FAERS Safety Report 10300593 (Version 1)
Quarter: 2014Q3

REPORT INFORMATION
  Report Type: Spontaneous
  Country: JP (occurrence: JP)
  Receive Date: 20140714
  Receipt Date: 20140714
  Transmission Date: 20150326
  Serious: Yes (Other)
  Sender: FDA-Public Use
  Company Number: JP-009507513-1407JPN004575

PATIENT
  Age: 56 Year
  Sex: Male

DRUGS (6)
  1. MICARDIS [Concomitant]
     Active Substance: TELMISARTAN
     Dosage: 40 MG, QD
     Route: 048
  2. REBETOL [Suspect]
     Active Substance: RIBAVIRIN
     Indication: CHRONIC HEPATITIS C
     Dosage: 600 MG, 1 IN 1 DAY
     Route: 048
     Dates: start: 20140109
  3. LENDORMIN D [Concomitant]
     Active Substance: BROTIZOLAM
     Indication: INSOMNIA
     Dosage: 2.5 MG, QD
     Route: 048
  4. ROHYPNOL [Concomitant]
     Active Substance: FLUNITRAZEPAM
     Indication: INSOMNIA
     Dosage: 2 MG, QD
     Route: 048
  5. PEGINTRON [Suspect]
     Active Substance: PEGINTERFERON ALFA-2B
     Indication: CHRONIC HEPATITIS C
     Dosage: 8 MICROGRAM, 1 IN 1 WEEK
     Route: 058
     Dates: start: 20140109
  6. SIMEPREVIR [Suspect]
     Active Substance: SIMEPREVIR
     Indication: CHRONIC HEPATITIS C
     Dosage: 100 MG, 1 IN 1 DAY
     Route: 048
     Dates: start: 20140109, end: 20140402

REACTIONS (5)
  - Platelet count decreased [Unknown]
  - Haemoglobin decreased [Unknown]
  - Blood alkaline phosphatase increased [Unknown]
  - Hyperbilirubinaemia [Recovering/Resolving]
  - Eosinophil count decreased [Unknown]

NARRATIVE: CASE EVENT DATE: 20140320
